FAERS Safety Report 4556669-4 (Version None)
Quarter: 2005Q1

REPORT INFORMATION
  Report Type: 
  Country: None (occurrence: None)
  Receive Date: 20050118
  Receipt Date: 20050110
  Transmission Date: 20050727
  Serious: Yes (Hospitalization)
  Sender: FDA-Public Use
  Company Number: TPA2005A00039

PATIENT
  Age: 86 Year
  Sex: Female
  Weight: 47.6277 kg

DRUGS (7)
  1. ACTOS [Suspect]
     Indication: DIABETES MELLITUS NON-INSULIN-DEPENDENT
     Dosage: 15 MG, 1 IN 1 D, PER ORAL
     Route: 048
     Dates: start: 20041112
  2. STARLIX [Concomitant]
  3. SYNTHROID [Concomitant]
  4. LASIX [Concomitant]
  5. CYPROHEPTADINE HCL [Concomitant]
  6. LOTREL (LOTREL) [Concomitant]
  7. ASPIRIN [Concomitant]

REACTIONS (1)
  - HEART RATE DECREASED [None]
